FAERS Safety Report 7367182-3 (Version None)
Quarter: 2011Q1

REPORT INFORMATION
  Report Type: 
  Country: None (occurrence: None)
  Receive Date: 20110322
  Receipt Date: 20110311
  Transmission Date: 20110831
  Serious: Yes (Death, Hospitalization)
  Sender: FDA-Public Use
  Company Number: FR-JNJFOC-20110306675

PATIENT
  Age: 85 Year
  Sex: Female

DRUGS (11)
  1. OXYGEN [Concomitant]
  2. PREVISCAN (PENTOXIFYLLINE) [Concomitant]
  3. CORVASAL [Concomitant]
  4. LYRICA [Suspect]
     Indication: PRODUCT USED FOR UNKNOWN INDICATION
     Route: 048
  5. EUPRESSYL [Concomitant]
  6. NITRODERM [Concomitant]
  7. SOLUPRED [Concomitant]
  8. ATARAX [Concomitant]
  9. ACETAMINOPHEN AND TRAMADOL HCL [Suspect]
     Indication: PRODUCT USED FOR UNKNOWN INDICATION
     Route: 048
  10. MOPRAL [Concomitant]
  11. CORDARONE [Concomitant]

REACTIONS (1)
  - ACUTE RESPIRATORY FAILURE [None]
